FAERS Safety Report 17164109 (Version 1)
Quarter: 2019Q4

REPORT INFORMATION
  Report Type: Spontaneous
  Country: US (occurrence: US)
  Receive Date: 20191217
  Receipt Date: 20191217
  Transmission Date: 20200122
  Serious: Yes (Hospitalization, Other)
  Sender: FDA-Public Use
  Company Number: US-APOTEX-2019AP026242

PATIENT
  Age: 61 Year
  Sex: Male

DRUGS (4)
  1. NADOLOL. [Suspect]
     Active Substance: NADOLOL
     Indication: HYPERTENSION
     Dosage: 40 MG, QD
     Route: 065
  2. IRBESARTAN. [Concomitant]
     Active Substance: IRBESARTAN
     Indication: HYPERTENSION
     Dosage: 300 MG, QD
     Route: 065
  3. HYDROCHLOROTHIAZIDE. [Concomitant]
     Active Substance: HYDROCHLOROTHIAZIDE
     Indication: HYPERTENSION
     Dosage: 12.5 MG, QD
     Route: 065
  4. DILTIAZEM. [Suspect]
     Active Substance: DILTIAZEM
     Indication: HYPERTENSION
     Dosage: 300 MG, QD
     Route: 065

REACTIONS (7)
  - Potentiating drug interaction [Unknown]
  - Hypotension [Unknown]
  - Sinus arrest [Unknown]
  - Nodal rhythm [Unknown]
  - Lethargy [Unknown]
  - Disorientation [Unknown]
  - Arrhythmia [Unknown]
